FAERS Safety Report 7474898-7 (Version None)
Quarter: 2011Q2

REPORT INFORMATION
  Report Type: 
  Country: None (occurrence: None)
  Receive Date: 20110505
  Receipt Date: 20110421
  Transmission Date: 20111010
  Serious: Yes (Hospitalization)
  Sender: FDA-Public Use
  Company Number: DEP_00485_2011

PATIENT
  Sex: Female

DRUGS (1)
  1. CIPROFLOXACIN [Suspect]
     Indication: COUGH
     Dosage: (1000 MG, DAILY ORAL)
     Route: 048
     Dates: start: 20110414, end: 20110416

REACTIONS (2)
  - TONGUE OEDEMA [None]
  - LIP OEDEMA [None]
